FAERS Safety Report 7421728-5 (Version None)
Quarter: 2011Q2

REPORT INFORMATION
  Report Type: 
  Country: None (occurrence: None)
  Receive Date: 20110407
  Receipt Date: 20110322
  Transmission Date: 20111010
  Serious: No
  Sender: FDA-Public Use
  Company Number: 029780

PATIENT
  Sex: Female
  Weight: 72.6 kg

DRUGS (4)
  1. BISOPROLOL FUMARATE AND HYDROCHLOROTHIAZIDE [Concomitant]
  2. KEPPRA [Suspect]
     Indication: CONVULSION
     Dosage: (750 MG BID, INITIAL DOSE 2009 OR 2010 LAST DOSE 22-MAR-2011 ORAL)
     Route: 048
  3. CARBATROL [Concomitant]
  4. LEVOTHYROXINE SODIUM [Concomitant]

REACTIONS (7)
  - IRRITABILITY [None]
  - FATIGUE [None]
  - INAPPROPRIATE SCHEDULE OF DRUG ADMINISTRATION [None]
  - HYPOAESTHESIA [None]
  - PARAESTHESIA [None]
  - AGITATION [None]
  - SOMNOLENCE [None]
